FAERS Safety Report 8922543 (Version 1)
Quarter: 2012Q4

REPORT INFORMATION
  Report Type: Spontaneous
  Country: AT (occurrence: None)
  Receive Date: 20121109
  Receipt Date: 20121109
  Transmission Date: 20130627
  Serious: Yes (Hospitalization, Other)
  Sender: FDA-Public Use
  Company Number: 2012S1000341

PATIENT
  Age: 72 Year
  Sex: Female
  Weight: 82 kg

DRUGS (16)
  1. CUBICIN [Suspect]
     Indication: ENDOCARDITIS STAPHYLOCOCCAL
     Route: 042
  2. PAUSEDAL [Concomitant]
  3. DIURETICS [Concomitant]
  4. ANTINEOPLASTIC AGENTS [Concomitant]
  5. ZYVOXID [Concomitant]
  6. LOVENOX [Concomitant]
  7. FUROSEMIDE [Concomitant]
  8. PANTOPRAZOLE [Concomitant]
  9. EBEFEN [Concomitant]
  10. MAGNESIUM GLUTAMATE [Concomitant]
  11. SPIROBENE [Concomitant]
  12. BERODUAL [Concomitant]
  13. ALL OTHER THERAPEUTIC PRODUCTS [Concomitant]
  14. CONCOR [Concomitant]
  15. HYPREN PLUS [Concomitant]
  16. THROMBO ASS [Concomitant]

REACTIONS (1)
  - Renal impairment [None]
